FAERS Safety Report 16269749 (Version 1)
Quarter: 2019Q2

REPORT INFORMATION
  Report Type: Spontaneous
  Country: US (occurrence: US)
  Receive Date: 20190502
  Receipt Date: 20190502
  Transmission Date: 20190711
  Serious: Yes (Hospitalization)
  Sender: FDA-Public Use
  Company Number: None

PATIENT
  Age: 70 Year
  Sex: Male

DRUGS (9)
  1. LANTUS SOLOSTAR 100/ML INJECTION [Concomitant]
     Dates: start: 20190419
  2. ATORVASTATIN 20MG TABLETS [Concomitant]
     Active Substance: ATORVASTATIN
     Dates: start: 20190128
  3. GLIPIZIDE 5MG TABLETS [Concomitant]
     Dates: start: 20190326
  4. METORPOLOL SUCCINATE TABLETS 50 MG [Concomitant]
     Dates: start: 20190418
  5. FUROSEMIDE 40MG TABLETS [Concomitant]
     Dates: start: 20190128
  6. SILDENAFIL. [Suspect]
     Active Substance: SILDENAFIL
     Indication: PULMONARY HYPERTENSION
     Route: 048
  7. ALLOPURINOL 100MG TABLETS [Concomitant]
     Dates: start: 20190202
  8. HUMALOG KWIK 100/ML INJECTION [Concomitant]
     Dates: start: 20190328
  9. BD PEN NEEDLES 32GX 4MM [Concomitant]
     Dates: start: 20190328

REACTIONS (2)
  - Influenza [None]
  - Blood glucose increased [None]

NARRATIVE: CASE EVENT DATE: 20190305
